FAERS Safety Report 16625642 (Version 1)
Quarter: 2019Q3

REPORT INFORMATION
  Report Type: Spontaneous
  Country: US (occurrence: US)
  Receive Date: 20190611
  Receipt Date: 20190611
  Transmission Date: 20191004
  Serious: Yes (Hospitalization, Other)
  Sender: FDA-Public Use
  Company Number: None

PATIENT
  Age: 59 Year
  Sex: Male
  Weight: 72.57 kg

DRUGS (6)
  1. TYLENOL EXTRA STRENGTH [Concomitant]
     Active Substance: ACETAMINOPHEN
  2. DEPAKOTE [Suspect]
     Active Substance: DIVALPROEX SODIUM
     Indication: INJURY
     Dosage: ?          QUANTITY:250 MG MILLIGRAM(S);?
     Route: 048
     Dates: start: 201505
  3. DEPAKOTE [Suspect]
     Active Substance: DIVALPROEX SODIUM
     Indication: ANXIETY
     Dosage: ?          QUANTITY:250 MG MILLIGRAM(S);?
     Route: 048
     Dates: start: 201505
  4. DEPAKOTE [Suspect]
     Active Substance: DIVALPROEX SODIUM
     Indication: DEPRESSION
     Dosage: ?          QUANTITY:250 MG MILLIGRAM(S);?
     Route: 048
     Dates: start: 201505
  5. REXULTI [Suspect]
     Active Substance: BREXPIPRAZOLE
     Dosage: ?          QUANTITY:1 MG MILLIGRAM(S);?
     Route: 048
  6. POLYGRIP TOOTH DENTURE CREAM [Concomitant]

REACTIONS (3)
  - Infection [None]
  - Hypersensitivity [None]
  - Adverse drug reaction [None]
